FAERS Safety Report 4709595-1 (Version None)
Quarter: 2005Q3

REPORT INFORMATION
  Report Type: 
  Country: None (occurrence: None)
  Receive Date: 20050707
  Receipt Date: 20050624
  Transmission Date: 20060218
  Serious: Yes (Other)
  Sender: FDA-Public Use
  Company Number: 2005-129821-NL

PATIENT
  Age: 31 Year
  Sex: Female
  Weight: 69.1 kg

DRUGS (2)
  1. NUVARING [Suspect]
     Indication: CONTRACEPTION
     Dosage: NI VAGINAL
     Route: 067
     Dates: start: 20030101, end: 20050607
  2. WEIGHT LOSS SUPPLEMENT NOS [Concomitant]

REACTIONS (5)
  - AGITATION [None]
  - CRYING [None]
  - FEELING ABNORMAL [None]
  - MOOD SWINGS [None]
  - SUICIDAL IDEATION [None]
